FAERS Safety Report 5035875-9 (Version None)
Quarter: 2006Q2

REPORT INFORMATION
  Report Type: 
  Country: None (occurrence: None)
  Receive Date: 20060526
  Receipt Date: 20060131
  Transmission Date: 20061013
  Serious: Yes (Hospitalization)
  Sender: FDA-Public Use
  Company Number: WAES 0602USA00243

PATIENT
  Age: 55 Year
  Sex: Male

DRUGS (7)
  1. VYTORIN [Suspect]
     Dosage: 10-20 MG/DAILY/PO
     Route: 048
  2. ANECTINE [Concomitant]
  3. MESDURIN [Concomitant]
  4. SEVORANE [Concomitant]
  5. SOFARIN [Concomitant]
  6. VERSED [Concomitant]
  7. FENTANYL [Concomitant]

REACTIONS (2)
  - BLOOD CREATINE PHOSPHOKINASE INCREASED [None]
  - SINUS DISORDER [None]
